FAERS Safety Report 7571874-0 (Version None)
Quarter: 2011Q2

REPORT INFORMATION
  Report Type: 
  Country: None (occurrence: None)
  Receive Date: 20110624
  Receipt Date: 20100523
  Transmission Date: 20111010
  Serious: No
  Sender: FDA-Public Use
  Company Number: A0861751A

PATIENT
  Sex: Female

DRUGS (2)
  1. VERAMYST [Suspect]
     Route: 045
  2. EYE DROPS [Suspect]
     Route: 047

REACTIONS (5)
  - FEELING HOT [None]
  - BURNING SENSATION [None]
  - ADVERSE REACTION [None]
  - EYE IRRITATION [None]
  - DRUG INTERACTION [None]
